FAERS Safety Report 8613488-7 (Version None)
Quarter: 2012Q3

REPORT INFORMATION
  Report Type: 
  Country: None (occurrence: None)
  Receive Date: 20120823
  Receipt Date: 20120809
  Transmission Date: 20120928
  Serious: Yes (Death)
  Sender: FDA-Public Use
  Company Number: HU-MYLANLABS-2012S1016663

PATIENT
  Age: 29 Year
  Sex: Female

DRUGS (15)
  1. DACARBAZINE [Suspect]
     Indication: NON-HODGKIN'S LYMPHOMA STAGE IV
     Route: 065
     Dates: start: 20060101
  2. DEXAMETHASONE [Suspect]
     Indication: NON-HODGKIN'S LYMPHOMA STAGE IV
     Route: 065
     Dates: start: 20060101
  3. IFOSFAMIDE [Suspect]
     Route: 065
     Dates: start: 20070101
  4. ETOPOSIDE [Suspect]
     Indication: NON-HODGKIN'S LYMPHOMA STAGE IV
     Route: 065
     Dates: start: 20060101
  5. CISPLATIN [Suspect]
     Indication: NON-HODGKIN'S LYMPHOMA STAGE IV
     Route: 065
     Dates: start: 20060101
  6. GEMCITABINE HYDROCHLORIDE [Suspect]
     Indication: NON-HODGKIN'S LYMPHOMA STAGE IV
     Route: 065
     Dates: start: 20070101
  7. RITUXIMAB [Suspect]
     Indication: NON-HODGKIN'S LYMPHOMA STAGE IV
     Route: 065
     Dates: start: 20070101
  8. CYTARABINE [Suspect]
     Indication: NON-HODGKIN'S LYMPHOMA STAGE IV
     Route: 065
     Dates: start: 20060101
  9. VINORELBINE [Suspect]
     Indication: NON-HODGKIN'S LYMPHOMA STAGE IV
     Route: 065
     Dates: start: 20070101
  10. DOXORUBICIN HYDROCHLORIDE [Suspect]
     Indication: NON-HODGKIN'S LYMPHOMA STAGE IV
     Route: 065
     Dates: start: 20060101
  11. VINBLASTINE SULFATE [Suspect]
     Indication: NON-HODGKIN'S LYMPHOMA STAGE IV
     Route: 065
     Dates: start: 20060101
  12. IFOSFAMIDE [Suspect]
     Indication: NON-HODGKIN'S LYMPHOMA STAGE IV
     Route: 065
     Dates: start: 20060101
  13. ETOPOSIDE [Suspect]
     Route: 065
     Dates: start: 20070101
  14. CARBOPLATIN [Suspect]
     Indication: NON-HODGKIN'S LYMPHOMA STAGE IV
     Route: 065
     Dates: start: 20060101
  15. BLEOMYCIN SULFATE [Suspect]
     Indication: NON-HODGKIN'S LYMPHOMA STAGE IV
     Route: 065
     Dates: start: 20060101

REACTIONS (3)
  - PANCYTOPENIA [None]
  - CYTOMEGALOVIRUS INFECTION [None]
  - HISTIOCYTOSIS HAEMATOPHAGIC [None]
